FAERS Safety Report 7044617-7 (Version None)
Quarter: 2010Q4

REPORT INFORMATION
  Report Type: 
  Country: None (occurrence: None)
  Receive Date: 20101013
  Receipt Date: 20101013
  Transmission Date: 20110411
  Serious: Yes (Life-Threatening, Hospitalization)
  Sender: FDA-Public Use
  Company Number: None

PATIENT
  Age: 55 Year
  Sex: Female

DRUGS (1)
  1. VERAPAMIL EXTENDED-RELEASE [Suspect]
     Indication: CARDIAC DISORDER
     Dosage: 300MG BY MOUTH ONCE DAILY
     Route: 048
     Dates: start: 20100713, end: 20100813

REACTIONS (2)
  - MYOCARDIAL INFARCTION [None]
  - PRODUCT SUBSTITUTION ISSUE [None]
